FAERS Safety Report 9075772 (Version 1)
Quarter: 2013Q1

REPORT INFORMATION
  Report Type: Spontaneous
  Country: PR (occurrence: PR)
  Receive Date: 20130131
  Receipt Date: 20130131
  Transmission Date: 20140127
  Serious: No
  Sender: FDA-Public Use
  Company Number: PR-ABBOTT-12P-131-1008351-00

PATIENT
  Sex: Female

DRUGS (1)
  1. HUMIRA [Suspect]
     Route: 058

REACTIONS (1)
  - Hepatic enzyme increased [Unknown]
